FAERS Safety Report 4550643-X (Version None)
Quarter: 2004Q4

REPORT INFORMATION
  Report Type: 
  Country: None (occurrence: None)
  Receive Date: 20041227
  Receipt Date: 20040907
  Transmission Date: 20050328
  Serious: No
  Sender: FDA-Public Use
  Company Number: 04P-163-0272470-00

PATIENT
  Age: 56 Year
  Sex: Female
  Weight: 83.0083 kg

DRUGS (8)
  1. HUMIRA [Suspect]
     Indication: RHEUMATOID ARTHRITIS
     Dosage: 40 MG, 1 IN 2 WK, SUBCUTANEOUS
     Route: 058
     Dates: start: 20040818
  2. METOPROLOL SUCCINATE [Concomitant]
  3. ESTROGENS CONJUGATED [Concomitant]
  4. AMLODIPINE BESYLATE [Concomitant]
  5. FOLIC ACID [Concomitant]
  6. CLOPIDOGREL BISULFATE [Concomitant]
  7. BUCINDOLOL HYDROCHLORIDE [Concomitant]
  8. FOLINIC ACID [Concomitant]

REACTIONS (4)
  - CONDITION AGGRAVATED [None]
  - DRUG INEFFECTIVE [None]
  - HEADACHE [None]
  - MUSCULAR WEAKNESS [None]
